FAERS Safety Report 18258296 (Version 2)
Quarter: 2020Q3

REPORT INFORMATION
  Report Type: Spontaneous
  Country: US (occurrence: US)
  Receive Date: 20200911
  Receipt Date: 20200918
  Transmission Date: 20201103
  Serious: No
  Sender: FDA-Public Use
  Company Number: US-SA-2020SA245974

PATIENT

DRUGS (30)
  1. ASMANEX [Concomitant]
     Active Substance: MOMETASONE FUROATE
  2. FLOMAX [Concomitant]
     Active Substance: TAMSULOSIN HYDROCHLORIDE
  3. PROVENTIL [Concomitant]
     Active Substance: ALBUTEROL
  4. VITAMIN B COMPLEX [Concomitant]
     Active Substance: CYANOCOBALAMIN\DEXPANTHENOL\NIACINAMIDE\PYRIDOXINE HYDROCHLORIDE\RIBOFLAVIN 5^-PHOSPHATE SODIUM\THIAMINE HYDROCHLORIDE\VITAMIN B COMPLEX
  5. TRIAMCINOLONE ACETONIDE. [Concomitant]
     Active Substance: TRIAMCINOLONE ACETONIDE
  6. EPIPEN [Concomitant]
     Active Substance: EPINEPHRINE
  7. LASIX [Concomitant]
     Active Substance: FUROSEMIDE
  8. LORAZEPAM. [Concomitant]
     Active Substance: LORAZEPAM
  9. METOPROLOL. [Concomitant]
     Active Substance: METOPROLOL
  10. PLAVIX [Concomitant]
     Active Substance: CLOPIDOGREL BISULFATE
  11. ALBUTEROL [SALBUTAMOL] [Concomitant]
     Active Substance: ALBUTEROL
  12. CALCIUM [Concomitant]
     Active Substance: CALCIUM
  13. OMEPRAZOLE. [Concomitant]
     Active Substance: OMEPRAZOLE
  14. ASPIRIN [ACETYLSALICYLIC ACID] [Concomitant]
     Active Substance: ASPIRIN
  15. DAILY?VITE [Concomitant]
  16. DICLOFENAC [Concomitant]
     Active Substance: DICLOFENAC
  17. VITAMINS NOS [Concomitant]
     Active Substance: VITAMINS
  18. PULMICORT TURBUHALER [Concomitant]
     Active Substance: BUDESONIDE
  19. CHLOR?TRIMETON [Concomitant]
     Active Substance: CHLORPHENIRAMINE MALEATE
  20. HCTZ [Concomitant]
     Active Substance: HYDROCHLOROTHIAZIDE
  21. TYLENOL [Concomitant]
     Active Substance: ACETAMINOPHEN
  22. FORTEO [Concomitant]
     Active Substance: TERIPARATIDE
  23. BIOTIN [Concomitant]
     Active Substance: BIOTIN
  24. HUMALOG [Concomitant]
     Active Substance: INSULIN LISPRO
  25. NEURONTIN [Concomitant]
     Active Substance: GABAPENTIN
  26. PREMPRO [Concomitant]
     Active Substance: ESTROGENS, CONJUGATED\MEDROXYPROGESTERONE ACETATE
  27. DALFAMPRIDINE. [Concomitant]
     Active Substance: DALFAMPRIDINE
     Dosage: UNK
     Route: 065
  28. AUBAGIO [Suspect]
     Active Substance: TERIFLUNOMIDE
     Indication: MULTIPLE SCLEROSIS
     Dosage: 14 MG, QD
     Route: 048
     Dates: start: 20160506
  29. ATORVASTATIN [Concomitant]
     Active Substance: ATORVASTATIN
  30. LUMIGAN [Concomitant]
     Active Substance: BIMATOPROST

REACTIONS (2)
  - Polyp [Recovering/Resolving]
  - Liver function test increased [Unknown]
